FAERS Safety Report 7539947-6 (Version None)
Quarter: 2011Q2

REPORT INFORMATION
  Report Type: 
  Country: None (occurrence: None)
  Receive Date: 20110603
  Receipt Date: 20110516
  Transmission Date: 20111010
  Serious: Yes (Other)
  Sender: FDA-Public Use
  Company Number: 20110403

PATIENT
  Age: 67 Year
  Sex: Female

DRUGS (5)
  1. QUETIAPINE [Concomitant]
  2. OXCARBAZEPINE [Suspect]
     Indication: BIPOLAR I DISORDER
     Dosage: 150 MG X 1,2 TIMES
  3. PHENYTOIN SODIUM [Suspect]
     Indication: EPILEPSY
     Dosage: 200 MG MORNING, 260 MG
  4. TOPIRAMATE [Concomitant]
  5. CLONAZEPAM [Concomitant]

REACTIONS (3)
  - ATAXIA [None]
  - TOXICITY TO VARIOUS AGENTS [None]
  - DRUG LEVEL INCREASED [None]
